FAERS Safety Report 24707755 (Version 2)
Quarter: 2024Q4

REPORT INFORMATION
  Report Type: Spontaneous
  Country: FR (occurrence: FR)
  Receive Date: 20241206
  Receipt Date: 20241219
  Transmission Date: 20250114
  Serious: Yes (Life-Threatening)
  Sender: TEVA
  Company Number: None

PATIENT
  Age: 30 Year
  Sex: Female

DRUGS (3)
  1. PAROXETINE [Suspect]
     Active Substance: PAROXETINE
     Indication: Toxicity to various agents
     Dosage: PAROXETINE HYDROCHLORIDE ANHYDROUS
     Route: 048
     Dates: start: 20240823, end: 20240823
  2. CYAMEMAZINE [Suspect]
     Active Substance: CYAMEMAZINE
     Indication: Toxicity to various agents
     Route: 048
     Dates: start: 20240823, end: 20240823
  3. XANAX [Suspect]
     Active Substance: ALPRAZOLAM
     Indication: Toxicity to various agents
     Route: 048
     Dates: start: 20240823, end: 20240823

REACTIONS (3)
  - Coma [Recovered/Resolved]
  - Toxicity to various agents [Recovered/Resolved]
  - Rhabdomyolysis [Recovered/Resolved]

NARRATIVE: CASE EVENT DATE: 20240823
